FAERS Safety Report 25413427 (Version 2)
Quarter: 2025Q2

REPORT INFORMATION
  Report Type: Spontaneous
  Country: US (occurrence: US)
  Receive Date: 20250609
  Receipt Date: 20250612
  Transmission Date: 20250716
  Serious: Yes (Other)
  Sender: SANOFI AVENTIS
  Company Number: US-SANOFI-02547812

PATIENT
  Age: 67 Year
  Sex: Female

DRUGS (1)
  1. DUPIXENT [Suspect]
     Active Substance: DUPILUMAB
     Indication: Diabetes mellitus
     Dosage: 300 MG, QOW
     Dates: start: 202504

REACTIONS (2)
  - Breast cancer female [Unknown]
  - Off label use [Unknown]

NARRATIVE: CASE EVENT DATE: 20250101
